FAERS Safety Report 5120360-6 (Version None)
Quarter: 2006Q4

REPORT INFORMATION
  Report Type: 
  Country: None (occurrence: None)
  Receive Date: 20061002
  Receipt Date: 20060727
  Transmission Date: 20070319
  Serious: Yes (Hospitalization)
  Sender: FDA-Public Use
  Company Number: DE200608002003

PATIENT
  Age: 75 Year
  Sex: Female

DRUGS (3)
  1. CYMBALTA (DULOXETINE HYDROCHLORIDE) CAPSULE [Suspect]
     Indication: DEPRESSION
     Dosage: SEE IMAGE
     Route: 048
     Dates: start: 20050301, end: 20060201
  2. CYMBALTA (DULOXETINE HYDROCHLORIDE) CAPSULE [Suspect]
     Indication: DEPRESSION
     Dosage: SEE IMAGE
     Route: 048
     Dates: start: 20060404, end: 20060518
  3. CYMBALTA (DULOXETINE HYDROCHLORIDE) CAPSULE [Suspect]
     Indication: DEPRESSION
     Dosage: SEE IMAGE
     Route: 048
     Dates: start: 20060404

REACTIONS (3)
  - DRUG INEFFECTIVE [None]
  - PANCREATIC CARCINOMA [None]
  - TRANSIENT PSYCHOSIS [None]
